FAERS Safety Report 23301350 (Version 1)
Quarter: 2023Q4

REPORT INFORMATION
  Report Type: Spontaneous
  Country: US (occurrence: None)
  Receive Date: 20231215
  Receipt Date: 20231215
  Transmission Date: 20240110
  Serious: Yes (Other)
  Sender: FDA-Public Use
  Company Number: None

PATIENT
  Age: 55 Year
  Sex: Male
  Weight: 126 kg

DRUGS (6)
  1. TRULICITY [Suspect]
     Active Substance: DULAGLUTIDE
     Indication: Diabetes mellitus
     Dates: start: 20231101, end: 20231209
  2. ATORVASTATIN [Concomitant]
     Active Substance: ATORVASTATIN
  3. METOPROLOL TARTRATE [Concomitant]
     Active Substance: METOPROLOL TARTRATE
  4. ELIQUIS [Concomitant]
     Active Substance: APIXABAN
  5. MAGNESIUM [Concomitant]
     Active Substance: MAGNESIUM
  6. licinopril (sp) (sugar adsorption block yellow football shaped) [Concomitant]

REACTIONS (1)
  - Atrial fibrillation [None]

NARRATIVE: CASE EVENT DATE: 20231214
